FAERS Safety Report 12517901 (Version 1)
Quarter: 2016Q2

REPORT INFORMATION
  Report Type: Spontaneous
  Country: GR (occurrence: GR)
  Receive Date: 20160630
  Receipt Date: 20160630
  Transmission Date: 20160815
  Serious: Yes (Death, Other)
  Sender: FDA-Public Use
  Company Number: GR-PFIZER INC-2016319914

PATIENT
  Age: 41 Year
  Sex: Male

DRUGS (8)
  1. VANCOMYCIN HCL [Suspect]
     Active Substance: VANCOMYCIN HYDROCHLORIDE
     Indication: MENINGITIS STREPTOCOCCAL
     Dosage: 500 MG X 4
  2. HYDROCORTISONE. [Concomitant]
     Active Substance: HYDROCORTISONE
     Indication: MENINGITIS STREPTOCOCCAL
     Dosage: UNK
  3. ACYCLOVIR /00587301/ [Concomitant]
     Active Substance: ACYCLOVIR
     Indication: MENINGITIS STREPTOCOCCAL
     Dosage: 250 MG, 2X3
  4. MANNITOL. [Concomitant]
     Active Substance: MANNITOL
     Indication: MENINGITIS STREPTOCOCCAL
     Dosage: UNK
  5. CEFTRIAXONE. [Suspect]
     Active Substance: CEFTRIAXONE
     Indication: MENINGITIS STREPTOCOCCAL
     Dosage: 2 G X 2
  6. FLUDROCORTISONE [Concomitant]
     Active Substance: FLUDROCORTISONE
     Indication: SYSTEMIC LUPUS ERYTHEMATOSUS
     Dosage: 10 MG, EVERY 24 HOURS
  7. FUROSEMIDE. [Concomitant]
     Active Substance: FUROSEMIDE
     Indication: MENINGITIS STREPTOCOCCAL
     Dosage: UNK
  8. ADRENALINE /00003901/ [Concomitant]
     Active Substance: EPINEPHRINE
     Indication: MENINGITIS STREPTOCOCCAL
     Dosage: UNK

REACTIONS (2)
  - Drug ineffective [Fatal]
  - Multiple organ dysfunction syndrome [Fatal]
